FAERS Safety Report 4362654-8 (Version None)
Quarter: 2004Q2

REPORT INFORMATION
  Report Type: 
  Country: None (occurrence: None)
  Receive Date: 20040517
  Receipt Date: 20040323
  Transmission Date: 20050107
  Serious: No
  Sender: FDA-Public Use
  Company Number: S04-USA-01992-02

PATIENT
  Age: 72 Year
  Sex: Female

DRUGS (2)
  1. NAMENDA [Suspect]
  2. SERZONE [Concomitant]

REACTIONS (1)
  - CRYING [None]
